FAERS Safety Report 7436749-6 (Version None)
Quarter: 2011Q2

REPORT INFORMATION
  Report Type: 
  Country: None (occurrence: None)
  Receive Date: 20110426
  Receipt Date: 20110415
  Transmission Date: 20111010
  Serious: Yes (Hospitalization)
  Sender: FDA-Public Use
  Company Number: US-ELI_LILLY_AND_COMPANY-US200909006027

PATIENT
  Sex: Male

DRUGS (6)
  1. ZYPREXA [Suspect]
     Indication: SCHIZOPHRENIA
     Dosage: 20 MG, UNK
  2. ZYPREXA [Suspect]
     Dosage: 40 MG, EACH EVENING
     Dates: start: 20060101
  3. ZANTAC [Concomitant]
     Dosage: 150 MG, UNK
  4. COGENTIN [Concomitant]
  5. GEMFIBROZIL [Concomitant]
     Dosage: 600 MG, 2/D
  6. LEXAPRO [Concomitant]
     Dosage: 20 MG, EACH EVENING

REACTIONS (8)
  - OVERDOSE [None]
  - PARANOIA [None]
  - HYPERACUSIS [None]
  - WEIGHT DECREASED [None]
  - BLOOD GLUCOSE INCREASED [None]
  - HOSPITALISATION [None]
  - FEAR [None]
  - HALLUCINATION, AUDITORY [None]
